FAERS Safety Report 10141768 (Version 5)
Quarter: 2014Q2

REPORT INFORMATION
  Report Type: Spontaneous
  Country: JP (occurrence: JP)
  Receive Date: 20140429
  Receipt Date: 20140527
  Transmission Date: 20141212
  Serious: Yes (Other)
  Sender: FDA-Public Use
  Company Number: JP-PFIZER INC-2014116895

PATIENT
  Age: 74 Year
  Sex: Female

DRUGS (1)
  1. ANCARON [Suspect]
     Dosage: 2 DF, DAILY
     Route: 048

REACTIONS (3)
  - Localised infection [Recovering/Resolving]
  - Dry skin [Recovering/Resolving]
  - Nail avulsion [Recovering/Resolving]
